FAERS Safety Report 16253442 (Version 1)
Quarter: 2019Q2

REPORT INFORMATION
  Report Type: Report from Study
  Country: None (occurrence: RO)
  Receive Date: 20190430
  Receipt Date: 20190430
  Transmission Date: 20190711
  Serious: Yes (Hospitalization)
  Sender: FDA-Public Use
  Company Number: RO-ABBVIE-19S-135-2756943-00

PATIENT
  Age: 69 Year
  Sex: Female

DRUGS (9)
  1. VIEKIRAX [Suspect]
     Active Substance: OMBITASVIR\PARITAPREVIR\RITONAVIR
     Indication: HEPATIC CIRRHOSIS
  2. EXVIERA [Suspect]
     Active Substance: DASABUVIR
     Indication: HEPATIC CIRRHOSIS
  3. BIO-SUN [Concomitant]
     Indication: PROBIOTIC THERAPY
     Route: 048
     Dates: start: 20190404, end: 20190414
  4. OMEPRAZOLE. [Concomitant]
     Active Substance: OMEPRAZOLE
     Indication: PROPHYLAXIS
     Dosage: UNKNOWN
     Route: 048
     Dates: start: 20190404, end: 20190414
  5. VIEKIRAX [Suspect]
     Active Substance: OMBITASVIR\PARITAPREVIR\RITONAVIR
     Indication: HEPATITIS C
     Route: 048
     Dates: start: 20181114, end: 20190205
  6. EXVIERA [Suspect]
     Active Substance: DASABUVIR
     Indication: HEPATITIS C
     Route: 048
     Dates: start: 20181114, end: 20190205
  7. DICARBOCALM [Concomitant]
     Indication: PRODUCT USED FOR UNKNOWN INDICATION
     Dosage: UNKNOWN
     Route: 048
     Dates: start: 20190404, end: 20190414
  8. ESSENTIALE FORTE N [Concomitant]
     Indication: LIVER DISORDER
     Dosage: UNKNOWN
     Route: 048
     Dates: start: 20190404, end: 20190414
  9. LIV 52 [Concomitant]
     Indication: LIVER DISORDER
     Route: 048
     Dates: start: 20190404, end: 20190412

REACTIONS (5)
  - Hypersomnia [Recovered/Resolved]
  - Pneumonia [Recovered/Resolved]
  - Eyelid disorder [Recovered/Resolved]
  - Decreased appetite [Recovered/Resolved]
  - Headache [Recovered/Resolved]

NARRATIVE: CASE EVENT DATE: 20190401
